FAERS Safety Report 17354206 (Version 1)
Quarter: 2020Q1

REPORT INFORMATION
  Report Type: Spontaneous
  Country: US (occurrence: US)
  Receive Date: 20200116
  Receipt Date: 20200116
  Transmission Date: 20200409
  Serious: No
  Sender: FDA-Public Use
  Company Number: None

PATIENT
  Age: 59 Year
  Sex: Male
  Weight: 102.06 kg

DRUGS (3)
  1. CTFO 10X GOLD CBD OIL AND 10X PURE ULTIMATE MULTI-VITAMIN [Suspect]
     Active Substance: CANNABIDIOL\HERBALS
     Route: 048
  2. 10X PURE ULTIMATE MULTI-VITAMIN [Suspect]
     Active Substance: MINERALS\VITAMINS
  3. MULTI-VITAMINS (CALCIUM PANTOTHENATE, FOLIC ACID, VITAMINS NOS) [Suspect]
     Active Substance: VITAMINS

REACTIONS (1)
  - Suspected counterfeit product [None]

NARRATIVE: CASE EVENT DATE: 20191015
